FAERS Safety Report 5581454-4 (Version None)
Quarter: 2008Q1

REPORT INFORMATION
  Report Type: 
  Country: None (occurrence: None)
  Receive Date: 20080104
  Receipt Date: 20071225
  Transmission Date: 20080703
  Serious: Yes (Other)
  Sender: FDA-Public Use
  Company Number: JP-WYE-H01893608

PATIENT
  Sex: Female
  Weight: 51 kg

DRUGS (6)
  1. MYLOTARG [Suspect]
     Indication: ACUTE MYELOID LEUKAEMIA
     Route: 041
     Dates: start: 20061230, end: 20061230
  2. MYLOTARG [Suspect]
     Route: 041
     Dates: start: 20070112, end: 20070112
  3. CEFZON [Concomitant]
     Indication: PROPHYLAXIS
     Route: 048
     Dates: start: 20061231, end: 20070109
  4. MEROPEN [Concomitant]
     Route: 041
     Dates: start: 20061224, end: 20061230
  5. DIFLUCAN [Concomitant]
     Indication: PROPHYLAXIS
     Route: 048
     Dates: start: 20061113, end: 20070221
  6. MAXIPIME [Concomitant]
     Route: 041
     Dates: start: 20061218, end: 20061223

REACTIONS (2)
  - NEUTROPHIL COUNT DECREASED [None]
  - PERFORMANCE STATUS DECREASED [None]
